FAERS Safety Report 18688558 (Version 5)
Quarter: 2021Q4

REPORT INFORMATION
  Report Type: Spontaneous
  Country: US (occurrence: US)
  Receive Date: 20201231
  Receipt Date: 20211102
  Transmission Date: 20220303
  Serious: No
  Sender: FDA-Public Use
  Company Number: US-BIOGEN-2020BI00943924

PATIENT
  Sex: Male

DRUGS (2)
  1. VUMERITY [Suspect]
     Active Substance: DIROXIMEL FUMARATE
     Indication: Multiple sclerosis
     Route: 048
     Dates: start: 20201028, end: 20201104
  2. VUMERITY [Suspect]
     Active Substance: DIROXIMEL FUMARATE
     Route: 048
     Dates: start: 20201104

REACTIONS (13)
  - Product dose omission in error [Unknown]
  - Acne [Not Recovered/Not Resolved]
  - Hepatic steatosis [Unknown]
  - Multiple allergies [Unknown]
  - Nasal congestion [Unknown]
  - Sinusitis [Unknown]
  - Abdominal discomfort [Unknown]
  - Multiple sclerosis [Unknown]
  - Gastrointestinal disorder [Unknown]
  - Flushing [Unknown]
  - Diarrhoea [Unknown]
  - Hepatic enzyme increased [Unknown]
  - Feeling hot [Unknown]

NARRATIVE: CASE EVENT DATE: 20200101
